FAERS Safety Report 8972129 (Version 1)
Quarter: 2012Q4

REPORT INFORMATION
  Report Type: 
  Country: BR (occurrence: BR)
  Receive Date: 20121219
  Receipt Date: 20121219
  Transmission Date: 20130627
  Serious: Yes (Hospitalization)
  Sender: FDA-Public Use
  Company Number: BR-ELI_LILLY_AND_COMPANY-BR201212002040

PATIENT
  Sex: Female
  Weight: 58 kg

DRUGS (2)
  1. HUMALOG LISPRO [Suspect]
     Indication: TYPE 1 DIABETES MELLITUS
     Dosage: 20 IU, tid
     Route: 058
     Dates: end: 20121204
  2. LANTUS [Concomitant]
     Dosage: 62 IU, each morning
     Route: 065

REACTIONS (1)
  - Blood glucose increased [Recovered/Resolved]
